FAERS Safety Report 14160605 (Version 2)
Quarter: 2017Q4

REPORT INFORMATION
  Report Type: Spontaneous
  Country: US (occurrence: US)
  Receive Date: 20171104
  Receipt Date: 20171113
  Transmission Date: 20180321
  Serious: No
  Sender: FDA-Public Use
  Company Number: US-TEVA-819579USA

PATIENT
  Sex: Female

DRUGS (2)
  1. OTFC [Suspect]
     Active Substance: FENTANYL CITRATE
     Indication: NERVE INJURY
     Dosage: A FEW TIMES A DAY
     Route: 065
  2. OTFC [Suspect]
     Active Substance: FENTANYL CITRATE
     Indication: MUSCULOSKELETAL DISCOMFORT

REACTIONS (6)
  - Dizziness [Not Recovered/Not Resolved]
  - Product use in unapproved indication [Unknown]
  - Withdrawal syndrome [Not Recovered/Not Resolved]
  - Tremor [Not Recovered/Not Resolved]
  - Abdominal discomfort [Not Recovered/Not Resolved]
  - Dysarthria [Not Recovered/Not Resolved]
